FAERS Safety Report 14264124 (Version 4)
Quarter: 2018Q3

REPORT INFORMATION
  Report Type: Report from Study
  Country: BR (occurrence: BR)
  Receive Date: 20171208
  Receipt Date: 20180725
  Transmission Date: 20181010
  Serious: Yes (Other)
  Sender: FDA-Public Use
  Company Number: BR-BAYER-2017-194394

PATIENT
  Age: 72 Year
  Sex: Female

DRUGS (13)
  1. LEVAMLODIPINE BESILATE [Concomitant]
     Active Substance: LEVAMLODIPINE BESYLATE
     Dosage: UNK
     Dates: start: 201710
  2. PURAN [Concomitant]
     Active Substance: LEVOTHYROXINE SODIUM
     Indication: THYROID HORMONE REPLACEMENT THERAPY
     Dosage: 125 MCG QD (30 MIN BEFORE BREAKFAST)
     Dates: start: 201012
  3. HYDROCHLOROTHIAZID [Concomitant]
     Active Substance: HYDROCHLOROTHIAZIDE
     Indication: HYPERTENSION
     Dosage: 25 MG, QD
     Dates: start: 20101109
  4. COPPERTONE [BENZOPHENONE,PADIMATE O] [Concomitant]
  5. BEPANTOL [Concomitant]
  6. NEXAVAR [Suspect]
     Active Substance: SORAFENIB
     Indication: METASTASES TO LUNG
     Dosage: 200 MG, BID
     Route: 048
     Dates: start: 20180209
  7. SIMVASTATIN. [Concomitant]
     Active Substance: SIMVASTATIN
     Indication: BLOOD CHOLESTEROL INCREASED
     Dosage: UNK
  8. NEXAVAR [Suspect]
     Active Substance: SORAFENIB
     Indication: FOLLICULAR THYROID CANCER
     Dosage: 400 MG, BID
     Route: 048
     Dates: start: 20170704, end: 201711
  9. LOSARTAN. [Concomitant]
     Active Substance: LOSARTAN
     Indication: HYPERTENSION
     Dosage: 1 DF, BID
     Dates: start: 20101109
  10. DIURIX [Concomitant]
     Active Substance: FUROSEMIDE
     Indication: HYPERTENSION
     Dosage: 25 MG, QD
     Dates: start: 201012
  11. ONDANSETRON HYDROCHLORIDE. [Concomitant]
     Active Substance: ONDANSETRON HYDROCHLORIDE
     Indication: NAUSEA
     Dosage: 2 DF, QD
  12. SIMVASTATIN. [Concomitant]
     Active Substance: SIMVASTATIN
     Indication: BLOOD TRIGLYCERIDES INCREASED
  13. IRON W/VITAMIN C [Concomitant]

REACTIONS (20)
  - Skin hypertrophy [Recovered/Resolved]
  - Gait disturbance [Recovered/Resolved]
  - Nasopharyngitis [Recovering/Resolving]
  - Malaise [None]
  - Hyperkeratosis [Recovered/Resolved]
  - Vomiting [None]
  - Dry skin [Recovered/Resolved]
  - Dyspepsia [None]
  - Nausea [Recovered/Resolved]
  - Skin disorder [Recovered/Resolved]
  - Decreased appetite [None]
  - Dry skin [Recovered/Resolved]
  - Constipation [Recovered/Resolved]
  - Immunodeficiency [Not Recovered/Not Resolved]
  - Blood pressure increased [Recovered/Resolved]
  - Palmar-plantar erythrodysaesthesia syndrome [Recovered/Resolved]
  - Diarrhoea [Recovered/Resolved]
  - Alopecia [Recovered/Resolved]
  - Skin wrinkling [Recovered/Resolved]
  - Pruritus [Recovered/Resolved]

NARRATIVE: CASE EVENT DATE: 201707
